FAERS Safety Report 6781926-0 (Version None)
Quarter: 2010Q2

REPORT INFORMATION
  Report Type: 
  Country: None (occurrence: None)
  Receive Date: 20100618
  Receipt Date: 20100618
  Transmission Date: 20101027
  Serious: Yes (Hospitalization)
  Sender: FDA-Public Use
  Company Number: None

PATIENT
  Sex: Female
  Weight: 69.1 kg

DRUGS (2)
  1. CISPLATIN [Suspect]
     Dosage: 75 MG
  2. VINORELBINE TARTRATE [Suspect]
     Dosage: 30 MG

REACTIONS (5)
  - BACK PAIN [None]
  - BLINDNESS [None]
  - HYPERTENSIVE CRISIS [None]
  - NECK PAIN [None]
  - PYREXIA [None]
